FAERS Safety Report 17466081 (Version 1)
Quarter: 2020Q1

REPORT INFORMATION
  Report Type: Spontaneous
  Country: CZ (occurrence: CZ)
  Receive Date: 20200227
  Receipt Date: 20200227
  Transmission Date: 20200409
  Serious: Yes (Other)
  Sender: FDA-Public Use
  Company Number: CZ-GLAXOSMITHKLINE-CZ2019233725

PATIENT
  Sex: Female

DRUGS (2)
  1. ZINNAT [Suspect]
     Active Substance: CEFUROXIME
     Indication: BREATH SOUNDS ABNORMAL
     Dosage: UNK
     Route: 065
  2. ATRAM [Suspect]
     Active Substance: CARVEDILOL
     Indication: HYPERTENSION
     Dosage: UNK
     Route: 065
     Dates: start: 200808

REACTIONS (3)
  - Headache [Unknown]
  - Bronchiectasis [Unknown]
  - Cough [Unknown]
